FAERS Safety Report 12182673 (Version 1)
Quarter: 2016Q1

REPORT INFORMATION
  Report Type: Spontaneous
  Country: US (occurrence: None)
  Receive Date: 20160315
  Receipt Date: 20160315
  Transmission Date: 20160526
  Serious: Yes (Death, Life-Threatening, Hospitalization, Other)
  Sender: FDA-Public Use
  Company Number: None

PATIENT
  Age: 51 Year
  Sex: Male
  Weight: 80.74 kg

DRUGS (2)
  1. ZOMETA [Suspect]
     Active Substance: ZOLEDRONIC ACID
     Indication: PLASMA CELL MYELOMA
     Dosage: 4 MG INFUSION MONTHLY MONTHLY INTO A VEIN
     Route: 042
     Dates: start: 20150531, end: 20151031
  2. ZOMETA [Suspect]
     Active Substance: ZOLEDRONIC ACID
     Indication: BONE DISORDER
     Dosage: 4 MG INFUSION MONTHLY MONTHLY INTO A VEIN
     Route: 042
     Dates: start: 20150531, end: 20151031

REACTIONS (11)
  - Osteomyelitis [None]
  - Asthenia [None]
  - Pneumonia adenoviral [None]
  - Hepatic failure [None]
  - Osteonecrosis of jaw [None]
  - Cardiac disorder [None]
  - Renal failure [None]
  - Electrolyte depletion [None]
  - Heart injury [None]
  - Pneumonia bacterial [None]
  - Dyspnoea [None]

NARRATIVE: CASE EVENT DATE: 20160304
